FAERS Safety Report 6610225-2 (Version None)
Quarter: 2010Q1

REPORT INFORMATION
  Report Type: 
  Country: None (occurrence: None)
  Receive Date: 20100302
  Receipt Date: 20100219
  Transmission Date: 20100710
  Serious: Yes (Hospitalization)
  Sender: FDA-Public Use
  Company Number: US-JNJFOC-20100210310

PATIENT
  Age: 1 Month
  Sex: Male

DRUGS (1)
  1. INFANTS' TYLENOL COLD [Suspect]
     Indication: DRUG USE FOR UNKNOWN INDICATION

REACTIONS (3)
  - ACCIDENTAL OVERDOSE [None]
  - SOMNOLENCE [None]
  - VENTRICULAR EXTRASYSTOLES [None]
